FAERS Safety Report 6996043-4 (Version None)
Quarter: 2010Q3

REPORT INFORMATION
  Report Type: 
  Country: None (occurrence: None)
  Receive Date: 20100918
  Receipt Date: 20081215
  Transmission Date: 20110219
  Serious: No
  Sender: FDA-Public Use
  Company Number: US-WYE-H07245508

PATIENT
  Sex: Female

DRUGS (8)
  1. EFFEXOR XR [Suspect]
     Indication: INSOMNIA
     Route: 048
     Dates: start: 20050101
  2. EFFEXOR XR [Suspect]
     Indication: MIGRAINE
     Route: 048
  3. EFFEXOR XR [Suspect]
     Route: 048
  4. EFFEXOR XR [Suspect]
     Dosage: ^TOOK A FEW LESS BEADS EACH DAY^
     Route: 048
     Dates: end: 20070101
  5. ZYRTEC [Concomitant]
  6. IBUPROFEN [Concomitant]
  7. TOPAMAX [Concomitant]
  8. SYNTHROID [Concomitant]

REACTIONS (4)
  - BLEPHAROSPASM [None]
  - DRUG WITHDRAWAL SYNDROME [None]
  - FATIGUE [None]
  - PARAESTHESIA [None]
